FAERS Safety Report 12677849 (Version 1)
Quarter: 2016Q3

REPORT INFORMATION
  Report Type: Not Available
  Country: JP (occurrence: IQ)
  Receive Date: 20160823
  Receipt Date: 20160823
  Transmission Date: 20161109
  Serious: Yes (Death, Hospitalization, Disabling, Other)
  Sender: FDA-Public Use
  Company Number: JP-AKORN-37371

PATIENT
  Age: 6 Year
  Sex: Male

DRUGS (1)
  1. VALPROIC ACID ORAL SOLUTION [Suspect]
     Active Substance: VALPROIC ACID

REACTIONS (16)
  - Kaposi^s sarcoma [None]
  - Malocclusion [None]
  - Skin discolouration [None]
  - Mouth breathing [None]
  - Skin lesion [None]
  - Hypertonia [None]
  - Hyperreflexia [None]
  - Pain in extremity [None]
  - Lymphadenopathy [None]
  - Respiratory tract infection [None]
  - Quadriplegia [None]
  - Breath sounds abnormal [None]
  - Oedema peripheral [None]
  - Atelectasis [None]
  - Seizure [None]
  - Clonus [None]
